FAERS Safety Report 4490227-5 (Version None)
Quarter: 2004Q4

REPORT INFORMATION
  Report Type: 
  Country: None (occurrence: None)
  Receive Date: 20041027
  Receipt Date: 20041021
  Transmission Date: 20050328
  Serious: Yes (Other)
  Sender: FDA-Public Use
  Company Number: USA-2004-0017308

PATIENT
  Age: 61 Year
  Sex: Male
  Weight: 67 kg

DRUGS (4)
  1. MORPHINE SULFATE [Suspect]
     Dosage: 20 MG, SINGLE, EPIDURAL
     Route: 008
  2. FENTANYL [Concomitant]
  3. THIOPENTAL SODIUM [Concomitant]
  4. SUCCINYLCHOLINE CHLORIDE (SUXAMETHONIUM CHLORIDE) [Concomitant]

REACTIONS (10)
  - ACCIDENTAL OVERDOSE [None]
  - ANAESTHETIC COMPLICATION [None]
  - BLADDER INJURY [None]
  - MEDICATION ERROR [None]
  - PCO2 INCREASED [None]
  - POST PROCEDURAL COMPLICATION [None]
  - RESPIRATORY DEPRESSION [None]
  - RESPIRATORY RATE DECREASED [None]
  - SOMNOLENCE [None]
  - URINARY RETENTION [None]
